FAERS Safety Report 12689622 (Version 1)
Quarter: 2016Q3

REPORT INFORMATION
  Report Type: Spontaneous
  Country: US (occurrence: US)
  Receive Date: 20160826
  Receipt Date: 20160826
  Transmission Date: 20161109
  Serious: Yes (Other)
  Sender: FDA-Public Use
  Company Number: US-SUNOVION-2016SUN002072

PATIENT
  Age: 58 Year
  Sex: Male
  Weight: 126.98 kg

DRUGS (3)
  1. RISPERDAL [Concomitant]
     Active Substance: RISPERIDONE
     Dosage: UNK
  2. LATUDA [Suspect]
     Active Substance: LURASIDONE HYDROCHLORIDE
     Indication: BIPOLAR DISORDER
     Dosage: 40 MG, UNK
     Route: 048
     Dates: start: 201608, end: 201608
  3. INVEGA [Concomitant]
     Active Substance: PALIPERIDONE
     Dosage: UNK

REACTIONS (2)
  - Dyskinesia [Recovered/Resolved]
  - Seizure like phenomena [Recovered/Resolved]

NARRATIVE: CASE EVENT DATE: 201608
